FAERS Safety Report 15283248 (Version 1)
Quarter: 2018Q3

REPORT INFORMATION
  Report Type: Spontaneous
  Country: US (occurrence: US)
  Receive Date: 20180816
  Receipt Date: 20180816
  Transmission Date: 20181010
  Serious: No
  Sender: FDA-Public Use
  Company Number: US-SUN PHARMACEUTICAL INDUSTRIES LTD-2018US-173155

PATIENT
  Sex: Female

DRUGS (1)
  1. TRAMADOL. [Suspect]
     Active Substance: TRAMADOL
     Indication: MYALGIA
     Dosage: ONE TO TWO TABLETS AS NEEDED UP TO 4 TIMES DAILY
     Route: 065
     Dates: start: 20180402

REACTIONS (2)
  - Drug ineffective [Unknown]
  - Product substitution issue [Unknown]
